FAERS Safety Report 5061242-8 (Version None)
Quarter: 2006Q3

REPORT INFORMATION
  Report Type: 
  Country: None (occurrence: None)
  Receive Date: 20060720
  Receipt Date: 20060707
  Transmission Date: 20061208
  Serious: Yes (Life-Threatening, Hospitalization)
  Sender: FDA-Public Use
  Company Number: 2006085502

PATIENT

DRUGS (1)
  1. DEPO-MEDROL [Suspect]
     Indication: HERNIA PAIN
     Dosage: INTRATHECAL
     Route: 037
     Dates: start: 20060101

REACTIONS (2)
  - BRAIN DEATH [None]
  - CEREBRAL THROMBOSIS [None]
